FAERS Safety Report 5447558-1 (Version None)
Quarter: 2007Q3

REPORT INFORMATION
  Report Type: 
  Country: None (occurrence: None)
  Receive Date: 20070905
  Receipt Date: 20070905
  Transmission Date: 20080115
  Serious: Yes (Life-Threatening, Disabling)
  Sender: FDA-Public Use
  Company Number: None

PATIENT

DRUGS (1)
  1. ROBITUSSON [Suspect]

REACTIONS (6)
  - CONFUSIONAL STATE [None]
  - DRUG DEPENDENCE [None]
  - FEELING DRUNK [None]
  - INTENTIONAL DRUG MISUSE [None]
  - OPIATES POSITIVE [None]
  - PHARMACEUTICAL PRODUCT COMPLAINT [None]
